FAERS Safety Report 7163961-6 (Version None)
Quarter: 2010Q4

REPORT INFORMATION
  Report Type: 
  Country: None (occurrence: None)
  Receive Date: 20101215
  Receipt Date: 20101202
  Transmission Date: 20110411
  Serious: Yes (Hospitalization, Congenital Anomaly)
  Sender: FDA-Public Use
  Company Number: A0680260A

PATIENT
  Sex: Male

DRUGS (1)
  1. PAXIL [Suspect]
     Indication: ANXIETY DISORDER
     Dosage: 20MG PER DAY

REACTIONS (3)
  - COARCTATION OF THE AORTA [None]
  - CONGENITAL AORTIC VALVE STENOSIS [None]
  - DRUG EXPOSURE DURING PREGNANCY [None]
